FAERS Safety Report 23944957 (Version 1)
Quarter: 2024Q2

REPORT INFORMATION
  Report Type: Spontaneous
  Country: US (occurrence: US)
  Receive Date: 20240606
  Receipt Date: 20240606
  Transmission Date: 20240716
  Serious: Yes (Hospitalization, Other)
  Sender: FDA-Public Use
  Company Number: US-ROCHE-3569397

PATIENT
  Sex: Female
  Weight: 49.486 kg

DRUGS (22)
  1. CLONAZEPAM [Suspect]
     Active Substance: CLONAZEPAM
     Indication: Anxiety
     Dosage: 0.5MG TABLET, 1 TABLET TWICE PER DAY AS NEEDED?DAILY DOSE: 1 MILLIGRAM
     Route: 048
     Dates: start: 20240521
  2. ACTEMRA [Suspect]
     Active Substance: TOCILIZUMAB
     Indication: Giant cell arteritis
     Dosage: 162MG/0.9ML; PRE-FILLED SYRINGE
     Route: 058
     Dates: start: 202401
  3. ACTEMRA [Suspect]
     Active Substance: TOCILIZUMAB
     Indication: Giant cell arteritis
     Dosage: EVERY 17-18 DAYS; PRE-FILLED SYRINGE
     Route: 058
     Dates: end: 202401
  4. ACTEMRA [Suspect]
     Active Substance: TOCILIZUMAB
     Indication: Giant cell arteritis
     Dosage: PRE-FILLED SYRINGE
     Route: 058
  5. PREDNISONE [Suspect]
     Active Substance: PREDNISONE
     Indication: C-reactive protein increased
     Dosage: DAILY DOSE: 40 MILLIGRAM
     Route: 048
     Dates: start: 2016
  6. PREDNISONE [Suspect]
     Active Substance: PREDNISONE
     Indication: Red blood cell sedimentation rate increased
     Dosage: DAILY DOSE: 40 MILLIGRAM
     Route: 048
     Dates: start: 2016
  7. PREDNISONE [Suspect]
     Active Substance: PREDNISONE
     Indication: Gastrointestinal disorder
     Dosage: DAILY DOSE: 40 MILLIGRAM
     Route: 048
     Dates: start: 2016
  8. PREDNISONE [Suspect]
     Active Substance: PREDNISONE
     Indication: Giant cell arteritis
     Dosage: DAILY DOSE: 40 MILLIGRAM
     Route: 048
     Dates: start: 2016
  9. PREDNISONE [Suspect]
     Active Substance: PREDNISONE
     Indication: C-reactive protein increased
     Dosage: TAPERING DOSE
     Route: 048
  10. PREDNISONE [Suspect]
     Active Substance: PREDNISONE
     Indication: Red blood cell sedimentation rate increased
     Dosage: TAPERING DOSE
     Route: 048
  11. PREDNISONE [Suspect]
     Active Substance: PREDNISONE
     Indication: Gastrointestinal disorder
     Dosage: TAPERING DOSE
     Route: 048
  12. PREDNISONE [Suspect]
     Active Substance: PREDNISONE
     Indication: Giant cell arteritis
     Dosage: TAPERING DOSE
     Route: 048
  13. PROLIA [Suspect]
     Active Substance: DENOSUMAB
     Indication: Bone disorder
  14. LOSARTAN POTASSIUM [Concomitant]
     Active Substance: LOSARTAN POTASSIUM
     Dosage: IN THE MORNING WITH BREAKFAST?DAILY DOSE: 20 MILLIGRAM
     Route: 048
  15. VITAMIN D3 [Concomitant]
     Active Substance: CHOLECALCIFEROL
     Dosage: EVERY MORNING WITH BREAKFAST?DAILY DOSE: 2000 IU (INTERNATIONAL UNIT)
     Route: 048
  16. ASPIRIN [Concomitant]
     Active Substance: ASPIRIN
     Dosage: EVERY MORNING WITH BREAKFAST?DAILY DOSE: 81 MILLIGRAM
     Route: 048
  17. ASCORBIC ACID\VITAMIN B COMPLEX [Concomitant]
     Active Substance: ASCORBIC ACID\VITAMIN B COMPLEX
     Route: 048
  18. CELEXA [Concomitant]
     Active Substance: CITALOPRAM HYDROBROMIDE
     Dosage: DAILY DOSE: 20 MILLIGRAM
     Route: 048
  19. PRAVASTATIN [Concomitant]
     Active Substance: PRAVASTATIN
     Dosage: IN THE MORNING WITH BREAKFAST
     Route: 048
  20. ZOLOFT [Concomitant]
     Active Substance: SERTRALINE HYDROCHLORIDE
  21. CITALOPRAM [Concomitant]
     Active Substance: CITALOPRAM\CITALOPRAM HYDROBROMIDE
     Dosage: DAILY DOSE: 20 MILLIGRAM
  22. SACCHAROMYCES CEREVISIAE [Concomitant]
     Active Substance: SACCHAROMYCES CEREVISIAE

REACTIONS (12)
  - Pneumonia [Recovered/Resolved]
  - Macular degeneration [Not Recovered/Not Resolved]
  - Pneumothorax [Unknown]
  - Pain [Recovered/Resolved]
  - Discomfort [Not Recovered/Not Resolved]
  - Tooth infection [Recovered/Resolved]
  - Joint swelling [Recovered/Resolved]
  - Swelling face [Recovered/Resolved]
  - Depression [Not Recovered/Not Resolved]
  - Pancreatic cyst [Not Recovered/Not Resolved]
  - Fatigue [Unknown]
  - Dysstasia [Unknown]
